FAERS Safety Report 23494968 (Version 2)
Quarter: 2024Q1

REPORT INFORMATION
  Report Type: Spontaneous
  Country: US (occurrence: US)
  Receive Date: 20240207
  Receipt Date: 20240229
  Transmission Date: 20240410
  Serious: Yes (Other)
  Sender: FDA-Public Use
  Company Number: US-BAYER-2024A020429

PATIENT
  Age: 40 Year
  Sex: Male

DRUGS (1)
  1. KOVALTRY [Suspect]
     Active Substance: ANTIHEMOPHILIC FACTOR, HUMAN RECOMBINANT
     Indication: Haemorrhage
     Dosage: INFUSE 8800 UNITS (+/-10%) AS NEEDED EVERY 24
     Dates: start: 20240130

REACTIONS (5)
  - Mouth haemorrhage [None]
  - Mouth swelling [None]
  - Tooth restoration [None]
  - Dental care [Not Recovered/Not Resolved]
  - Haemorrhage [None]

NARRATIVE: CASE EVENT DATE: 20240201
